FAERS Safety Report 5782945-3 (Version None)
Quarter: 2008Q2

REPORT INFORMATION
  Report Type: 
  Country: None (occurrence: None)
  Receive Date: 20080624
  Receipt Date: 20080611
  Transmission Date: 20081010
  Serious: Yes (Hospitalization)
  Sender: FDA-Public Use
  Company Number: GB-ELI_LILLY_AND_COMPANY-GBT040801564

PATIENT
  Age: 66 Year
  Sex: Male
  Weight: 68.4 kg

DRUGS (10)
  1. GEMCITABINE HCL [Suspect]
     Indication: NON-SMALL CELL LUNG CANCER
     Dosage: 2120 MG, UNKNOWN
     Route: 042
     Dates: start: 20040312
  2. CARBOPLATIN [Suspect]
     Indication: NON-SMALL CELL LUNG CANCER
     Dosage: 520 MG, UNKNOWN
     Route: 042
     Dates: start: 20040312
  3. ALBUTEROL [Concomitant]
     Dosage: UNK, UNKNOWN
     Dates: start: 20010101
  4. ACETAMINOPHEN [Concomitant]
     Dosage: 1 G, UNKNOWN
     Route: 048
     Dates: start: 20040806
  5. LACTULOSE [Concomitant]
     Dosage: 10 ML, UNKNOWN
     Route: 048
     Dates: start: 20040806
  6. TAZOCIN [Concomitant]
     Dosage: 4.5 G, UNKNOWN
     Route: 042
     Dates: start: 20040808
  7. LIGNOCAINE [Concomitant]
     Dosage: 190, UNKNOWN
     Route: 061
     Dates: start: 20040810
  8. GTN-S [Concomitant]
     Dosage: 0.290, UNKNOWN
     Route: 061
     Dates: start: 20040810
  9. CODEINE SUL TAB [Concomitant]
     Dosage: 30-60 MG, UNKNOWN
     Route: 048
     Dates: start: 20040810
  10. ZOPICLONE [Concomitant]
     Dosage: 7.5 MG, UNKNOWN
     Route: 048
     Dates: start: 20040810

REACTIONS (2)
  - ANAL FISSURE [None]
  - THROMBOCYTOPENIA [None]
